FAERS Safety Report 21360807 (Version 1)
Quarter: 2022Q3

REPORT INFORMATION
  Report Type: Report from Study
  Country: US (occurrence: US)
  Receive Date: 20220921
  Receipt Date: 20220921
  Transmission Date: 20221027
  Serious: Yes (Hospitalization, Other)
  Sender: FDA-Public Use
  Company Number: US-BRISTOL-MYERS SQUIBB COMPANY-2022-105598

PATIENT
  Age: 60 Year
  Sex: Male
  Weight: 87.09 kg

DRUGS (1)
  1. REVLIMID [Suspect]
     Active Substance: LENALIDOMIDE
     Indication: Plasma cell myeloma
     Dosage: DAILY FOR 21 DAYS OF 28 DAY CYCLE
     Route: 048
     Dates: start: 202204

REACTIONS (3)
  - Hypervolaemia [Unknown]
  - Thrombosis [Unknown]
  - Transient ischaemic attack [Unknown]
